FAERS Safety Report 20819396 (Version 7)
Quarter: 2022Q4

REPORT INFORMATION
  Report Type: Spontaneous
  Country: US (occurrence: US)
  Receive Date: 20220512
  Receipt Date: 20221213
  Transmission Date: 20230113
  Serious: Yes (Other)
  Sender: FDA-Public Use
  Company Number: US-PFIZER INC-202200635346

PATIENT
  Age: 55 Year
  Sex: Female

DRUGS (2)
  1. IBRANCE [Suspect]
     Active Substance: PALBOCICLIB
     Indication: Breast cancer female
     Dosage: 125 MG
  2. IBRANCE [Suspect]
     Active Substance: PALBOCICLIB
     Dosage: 1 PILL A WEEK

REACTIONS (15)
  - Kidney infection [Unknown]
  - Pain in extremity [Unknown]
  - Hypoaesthesia [Unknown]
  - Fatigue [Unknown]
  - Weight increased [Unknown]
  - Muscle spasms [Unknown]
  - Initial insomnia [Unknown]
  - Blood test abnormal [Recovered/Resolved]
  - Positron emission tomogram abnormal [Unknown]
  - Red blood cell count abnormal [Unknown]
  - Dizziness [Unknown]
  - Red blood cell count decreased [Unknown]
  - Muscle spasms [Unknown]
  - Product dose omission in error [Unknown]
  - Intentional product misuse [Unknown]
